FAERS Safety Report 14969837 (Version 1)
Quarter: 2018Q2

REPORT INFORMATION
  Report Type: Spontaneous
  Country: US (occurrence: US)
  Receive Date: 20180512
  Receipt Date: 20180512
  Transmission Date: 20180711
  Serious: Yes (Other)
  Sender: FDA-Public Use
  Company Number: None

PATIENT
  Age: 63 Year
  Sex: Male
  Weight: 65.25 kg

DRUGS (5)
  1. FLOMAZ [Concomitant]
  2. PRILOSEC [Concomitant]
     Active Substance: OMEPRAZOLE MAGNESIUM
  3. MULTIPLE VITAMIN [Concomitant]
     Active Substance: VITAMINS
  4. LYRICA [Suspect]
     Active Substance: PREGABALIN
     Indication: INCISIONAL HERNIA
     Dosage: ?          QUANTITY:1 DF DOSAGE FORM;?
     Route: 048
  5. BABY ASPIRIN [Concomitant]
     Active Substance: ASPIRIN

REACTIONS (1)
  - Vision blurred [None]

NARRATIVE: CASE EVENT DATE: 20180511
